FAERS Safety Report 23629755 (Version 1)
Quarter: 2024Q1

REPORT INFORMATION
  Report Type: Other
  Country: PT (occurrence: PT)
  Receive Date: 20240314
  Receipt Date: 20240314
  Transmission Date: 20240410
  Serious: Yes (Death)
  Sender: FDA-Public Use
  Company Number: PT-KERNPHARMA-202400412

PATIENT

DRUGS (1)
  1. DEXAMETHASONE [Suspect]
     Active Substance: DEXAMETHASONE
     Indication: Maternal therapy to enhance foetal lung maturity
     Dosage: FOUR ADMINISTRATIONS OF INTRAMUSCULAR DEXAMETHASONE (6 MG EACH)
     Route: 030

REACTIONS (1)
  - Exposure during pregnancy [Fatal]
